FAERS Safety Report 7557521-2 (Version None)
Quarter: 2011Q2

REPORT INFORMATION
  Report Type: 
  Country: None (occurrence: None)
  Receive Date: 20110620
  Receipt Date: 20110617
  Transmission Date: 20111010
  Serious: Yes (Disabling)
  Sender: FDA-Public Use
  Company Number: US-PFIZER INC-2011104934

PATIENT
  Sex: Female
  Weight: 109 kg

DRUGS (10)
  1. CYMBALTA [Concomitant]
     Indication: MENTAL DISORDER
     Dosage: 30 MG, DAILY
     Route: 048
  2. ACTOPLUS MET [Concomitant]
     Indication: DIABETES MELLITUS
     Dosage: 15/850 MG, DAILY
     Route: 048
  3. CELEBREX [Suspect]
     Indication: ARTHRITIS
     Dosage: 200 MG, 2X/DAY
     Route: 048
  4. SKELAXIN [Concomitant]
     Indication: FIBROMYALGIA
     Dosage: 800 MG, 2X/DAY
     Route: 048
  5. GABAPENTIN [Concomitant]
     Indication: MENTAL DISORDER
     Dosage: 600 MG, 2X/DAY
     Route: 048
  6. GABAPENTIN [Concomitant]
     Indication: BACK PAIN
  7. SIMVASTATIN [Concomitant]
     Dosage: 40 MG, DAILY
     Route: 048
  8. LAMOTRIGINE [Concomitant]
     Indication: BLOOD CHOLESTEROL ABNORMAL
     Dosage: 100 MG, 2X/DAY
     Route: 048
  9. CLOMIPRAMINE HYDROCHLORIDE [Concomitant]
     Dosage: 100 MG, 1X/DAY AT NIGHT
     Route: 048
  10. VITAMIN D [Concomitant]
     Indication: VITAMIN SUPPLEMENTATION
     Dosage: 5000 UNITS DAILY, 50000 UNITS WEEKLY
     Route: 048

REACTIONS (2)
  - MUSCULOSKELETAL DISCOMFORT [None]
  - BACK DISORDER [None]
